FAERS Safety Report 12153110 (Version 1)
Quarter: 2016Q1

REPORT INFORMATION
  Report Type: Spontaneous
  Country: US (occurrence: US)
  Receive Date: 20160305
  Receipt Date: 20160305
  Transmission Date: 20160526
  Serious: No
  Sender: FDA-Public Use
  Company Number: US-JNJFOC-20160209786

PATIENT
  Age: 49 Year
  Sex: Female
  Weight: 72.58 kg

DRUGS (5)
  1. CONTRACEPTIVES [Concomitant]
     Active Substance: UNSPECIFIED INGREDIENT
     Indication: CONTRACEPTION
     Route: 065
  2. ZYRTEC-D [Suspect]
     Active Substance: CETIRIZINE HYDROCHLORIDE\PSEUDOEPHEDRINE HYDROCHLORIDE
     Indication: NASAL CONGESTION
     Dosage: 1 TABLET
     Route: 048
     Dates: end: 20160206
  3. ZYRTEC-D [Suspect]
     Active Substance: CETIRIZINE HYDROCHLORIDE\PSEUDOEPHEDRINE HYDROCHLORIDE
     Indication: MULTIPLE ALLERGIES
     Dosage: 1 TABLET
     Route: 048
     Dates: end: 20160206
  4. ANTIBIOTICS [Concomitant]
     Active Substance: UNSPECIFIED INGREDIENT
     Indication: INFECTION
     Route: 065
  5. DIPHENHYDRAMINE. [Concomitant]
     Active Substance: DIPHENHYDRAMINE
     Indication: MULTIPLE ALLERGIES
     Route: 065

REACTIONS (2)
  - Lymphadenopathy [Recovered/Resolved]
  - Inappropriate schedule of drug administration [Recovered/Resolved]
